FAERS Safety Report 19882405 (Version 1)
Quarter: 2021Q3

REPORT INFORMATION
  Report Type: Report from Study
  Country: CA (occurrence: CA)
  Receive Date: 20210925
  Receipt Date: 20210925
  Transmission Date: 20211014
  Serious: Yes (Other)
  Sender: FDA-Public Use
  Company Number: CA-SA-2021SA315373

PATIENT
  Age: 37 Year
  Sex: Female

DRUGS (6)
  1. VENTOLIN [Concomitant]
     Active Substance: ALBUTEROL SULFATE
     Dosage: UNK
  2. PROTOPIC [Concomitant]
     Active Substance: TACROLIMUS
     Dosage: UNK
  3. FUCIBET [Concomitant]
     Active Substance: BETAMETHASONE VALERATE\FUSIDIC ACID
     Dosage: UNK
  4. DUPILUMAB [Suspect]
     Active Substance: DUPILUMAB
     Indication: DERMATITIS ATOPIC
     Dosage: 600 MG, 1X
     Route: 058
     Dates: start: 20210921, end: 20210921
  5. METHOTREXATE. [Concomitant]
     Active Substance: METHOTREXATE
     Dosage: UNK
  6. MONTELUKAST [Concomitant]
     Active Substance: MONTELUKAST SODIUM
     Dosage: UNK

REACTIONS (1)
  - Haemorrhage [Recovered/Resolved]

NARRATIVE: CASE EVENT DATE: 20210921
